FAERS Safety Report 20687541 (Version 1)
Quarter: 2022Q2

REPORT INFORMATION
  Report Type: Report from Study
  Country: US (occurrence: US)
  Receive Date: 20220408
  Receipt Date: 20220408
  Transmission Date: 20220720
  Serious: Yes (Hospitalization, Other)
  Sender: FDA-Public Use
  Company Number: US-GILEAD-2022-0576526

PATIENT
  Sex: Female

DRUGS (14)
  1. AZTREONAM LYSINE [Suspect]
     Active Substance: AZTREONAM LYSINE
     Indication: Bronchiectasis
     Dosage: 75 MG, TID, 28/28
     Route: 055
  2. AZTREONAM LYSINE [Suspect]
     Active Substance: AZTREONAM LYSINE
     Indication: Lower respiratory tract infection
  3. AZTREONAM LYSINE [Suspect]
     Active Substance: AZTREONAM LYSINE
     Indication: Bacterial infection
  4. FOSAMAX [Concomitant]
     Active Substance: ALENDRONATE SODIUM
  5. AMBIEN [Concomitant]
     Active Substance: ZOLPIDEM TARTRATE
  6. FLUTICASONE FUROATE\SALMETEROL XINAFOATE [Concomitant]
     Active Substance: FLUTICASONE FUROATE\SALMETEROL XINAFOATE
  7. AZELASTINE HYDROCHLORIDE\FLUTICASONE FUROATE [Concomitant]
     Active Substance: AZELASTINE HYDROCHLORIDE\FLUTICASONE FUROATE
  8. ALBUTEROL SULFATE [Concomitant]
     Active Substance: ALBUTEROL SULFATE
  9. METOPROLOL SUCCINATE [Concomitant]
     Active Substance: METOPROLOL SUCCINATE
  10. CLONAZEPAM [Concomitant]
     Active Substance: CLONAZEPAM
  11. GABAPENTIN [Concomitant]
     Active Substance: GABAPENTIN
  12. AMLODIPINE BESYLATE [Concomitant]
     Active Substance: AMLODIPINE BESYLATE
  13. CALCIUM [Concomitant]
     Active Substance: CALCIUM
  14. HYDROCORTISONE [Concomitant]
     Active Substance: HYDROCORTISONE

REACTIONS (3)
  - Pneumonia [Unknown]
  - Respiratory tract infection viral [Unknown]
  - Off label use [Not Recovered/Not Resolved]
